FAERS Safety Report 6465320-8 (Version None)
Quarter: 2009Q4

REPORT INFORMATION
  Report Type: 
  Country: None (occurrence: None)
  Receive Date: 20091124
  Receipt Date: 20091120
  Transmission Date: 20100525
  Serious: Yes (Death, Life-Threatening, Hospitalization)
  Sender: FDA-Public Use
  Company Number: SPV1-2009-02221

PATIENT
  Age: 82 Year
  Sex: Female
  Weight: 60 kg

DRUGS (7)
  1. ANAGRELIDE HCL [Suspect]
     Indication: ESSENTIAL THROMBOCYTHAEMIA
     Dosage: 0.5 MG, 2X/DAY:BID, ORAL; 0.75 MG, 2X/DAY:BID, ORAL
     Route: 048
     Dates: start: 20090921, end: 20091011
  2. ANAGRELIDE HCL [Suspect]
     Indication: ESSENTIAL THROMBOCYTHAEMIA
     Dosage: 0.5 MG, 2X/DAY:BID, ORAL; 0.75 MG, 2X/DAY:BID, ORAL
     Route: 048
     Dates: start: 20091106, end: 20091108
  3. ATENOLOL [Concomitant]
  4. BENDROFLUAZIDE  (BENDROFLUMETHIAZIDE) [Concomitant]
  5. ASPIRIN [Concomitant]
  6. FLOXACILLIN SODIUM [Concomitant]
  7. CO-AMOXICLAVE   (AMOXICILLIN TRIHYDRATE, CLAVULANATE POTASSIUM) [Concomitant]

REACTIONS (6)
  - ACUTE RESPIRATORY DISTRESS SYNDROME [None]
  - HYPOTENSION [None]
  - PULMONARY FIBROSIS [None]
  - RENAL FAILURE [None]
  - RIGHT VENTRICULAR FAILURE [None]
  - SEPSIS [None]
